FAERS Safety Report 5071895-6 (Version None)
Quarter: 2006Q3

REPORT INFORMATION
  Report Type: 
  Country: None (occurrence: None)
  Receive Date: 20060804
  Receipt Date: 20060801
  Transmission Date: 20061208
  Serious: Yes (Hospitalization)
  Sender: FDA-Public Use
  Company Number: FR-MERCK-0608FRA00001

PATIENT
  Age: 84 Year
  Sex: Female

DRUGS (3)
  1. ALDOMET [Suspect]
     Indication: HYPERTENSION
     Route: 048
     Dates: start: 19910101
  2. CELIPROLOL HYDROCHLORIDE [Concomitant]
     Indication: HYPERTENSION
     Route: 048
  3. OXAZEPAM [Concomitant]
     Route: 048

REACTIONS (2)
  - PLEURISY [None]
  - RESPIRATORY DISORDER [None]
